FAERS Safety Report 4340799-6 (Version None)
Quarter: 2004Q2

REPORT INFORMATION
  Report Type: 
  Country: None (occurrence: None)
  Receive Date: 20040419
  Receipt Date: 20020805
  Transmission Date: 20050107
  Serious: No
  Sender: FDA-Public Use
  Company Number: US-GLAXOSMITHKLINE-A0376989A

PATIENT
  Age: 10 Year
  Sex: Male

DRUGS (7)
  1. ESKALITH CR [Suspect]
     Route: 048
     Dates: start: 20020724, end: 20020101
  2. GUANFACINE HCL [Concomitant]
  3. BENZTROPINE MESYLATE [Concomitant]
  4. CONCERTA [Concomitant]
  5. PROZAC [Concomitant]
  6. ZYPREXA [Concomitant]
  7. DEPAKOTE [Concomitant]

REACTIONS (1)
  - PARKINSONISM [None]
